FAERS Safety Report 9470984 (Version 1)
Quarter: 2013Q3

REPORT INFORMATION
  Report Type: Spontaneous
  Country: TR (occurrence: None)
  Receive Date: 20130815
  Receipt Date: 20130815
  Transmission Date: 20140515
  Serious: Yes (Hospitalization)
  Sender: FDA-Public Use
  Company Number: FK201303358

PATIENT
  Age: 50 Year
  Sex: Female

DRUGS (8)
  1. FLUOROURACIL (MANUFACTURER UNKNOWN) (FLUOROURACIL) (FLUOROURACIL) [Suspect]
     Indication: ADENOCARCINOMA OF COLON
     Dosage: 500 MG/M2
  2. LEUCOVORIN CALCIUM [Suspect]
     Indication: ADENOCARCINOMA OF COLON
     Dosage: 20 MG/M2
  3. IRINOTECAN (MANUFACTURER UNKNOWN) (IRINOTECAN) (IRINOTECAN) [Suspect]
     Indication: ADENOCARCINOMA OF COLON
     Dosage: 125 MG/M2
  4. DEXAMETHASONE (DEXAMETHASONE) [Concomitant]
  5. DEXAMETHASONE (ONDANSETRON) [Concomitant]
  6. CODEINE (CODEINE) [Concomitant]
  7. PIROXICAM (PIROXICAM) [Concomitant]
  8. OMEPRAZOL (OMEPRAZOLE) [Concomitant]

REACTIONS (1)
  - Pancreatitis [None]
